FAERS Safety Report 5871550-6 (Version None)
Quarter: 2008Q3

REPORT INFORMATION
  Report Type: 
  Country: None (occurrence: None)
  Receive Date: 20080905
  Receipt Date: 20080422
  Transmission Date: 20090109
  Serious: No
  Sender: FDA-Public Use
  Company Number: A0722865A

PATIENT
  Age: 75 Year
  Sex: Male

DRUGS (12)
  1. REQUIP [Suspect]
     Indication: RESTLESS LEGS SYNDROME
     Dosage: 1MG AT NIGHT
     Route: 048
     Dates: start: 20070401
  2. ALDACTONE [Concomitant]
  3. CLINORIL [Concomitant]
  4. BUMEX [Concomitant]
  5. COREG [Concomitant]
  6. PLAVIX [Concomitant]
  7. ROBAXIN [Concomitant]
  8. ATIVAN [Concomitant]
  9. PRILOSEC [Concomitant]
  10. IMDUR [Concomitant]
  11. NEURONTIN [Concomitant]
  12. VYTORIN [Concomitant]

REACTIONS (1)
  - DRUG INEFFECTIVE [None]
